FAERS Safety Report 4820214-6 (Version None)
Quarter: 2005Q4

REPORT INFORMATION
  Report Type: 
  Country: None (occurrence: None)
  Receive Date: 20051014
  Receipt Date: 20050802
  Transmission Date: 20060501
  Serious: No
  Sender: FDA-Public Use
  Company Number: 2005SP002190

PATIENT
  Age: 50 Year
  Sex: Male
  Weight: 68.9467 kg

DRUGS (11)
  1. LUNESTA ( 3MG) [Suspect]
     Indication: INSOMNIA
     Dosage: 3 MG;HS;ORAL
     Route: 048
     Dates: start: 20050725
  2. LUNESTA ( 3MG) [Suspect]
     Indication: NEUROPATHY PERIPHERAL
     Dosage: 3 MG;HS;ORAL
     Route: 048
     Dates: start: 20050725
  3. ZERIT [Concomitant]
  4. ZIAGEN [Concomitant]
  5. REYATAZ [Concomitant]
  6. EPIVIR [Concomitant]
  7. AMITRIPTYLINE HCL [Concomitant]
  8. PANTOPRAZOLE [Concomitant]
  9. AMBIEN [Concomitant]
  10. REMERON [Concomitant]
  11. HIV COCKTAIL [Concomitant]

REACTIONS (2)
  - AGITATION [None]
  - ANGER [None]
